FAERS Safety Report 8286039-7 (Version None)
Quarter: 2012Q2

REPORT INFORMATION
  Report Type: 
  Country: None (occurrence: None)
  Receive Date: 20120416
  Receipt Date: 20120406
  Transmission Date: 20120825
  Serious: Yes (Hospitalization)
  Sender: FDA-Public Use
  Company Number: US-BIOGENIDEC-2012BI012021

PATIENT
  Age: 69 Year
  Sex: Male

DRUGS (2)
  1. AVONEX [Suspect]
     Route: 030
     Dates: start: 20090606
  2. AVONEX [Suspect]
     Indication: MULTIPLE SCLEROSIS
     Route: 030
     Dates: end: 20060601

REACTIONS (4)
  - ASTHENIA [None]
  - WHITE BLOOD CELL COUNT INCREASED [None]
  - HERNIA [None]
  - MUSCULOSKELETAL DISORDER [None]
